FAERS Safety Report 18782094 (Version 1)
Quarter: 2021Q1

REPORT INFORMATION
  Report Type: Spontaneous
  Country: US (occurrence: US)
  Receive Date: 20210125
  Receipt Date: 20210125
  Transmission Date: 20210419
  Serious: Yes (Hospitalization)
  Sender: FDA-Public Use
  Company Number: None

PATIENT
  Age: 66 Year
  Sex: Female
  Weight: 67.8 kg

DRUGS (7)
  1. BAMLANIVIMAB 700MG IV ONCE [Concomitant]
     Dates: start: 20210108, end: 20210108
  2. BAMLANIVIMAB. [Suspect]
     Active Substance: BAMLANIVIMAB
     Indication: COVID-19
     Dosage: ?          OTHER FREQUENCY:ONCE;?
     Route: 042
     Dates: start: 20210108, end: 20210108
  3. ONDANSETRON 4MG IV [Concomitant]
     Active Substance: ONDANSETRON
     Dates: start: 20210108, end: 20210108
  4. ONDANSETRON 4MG IV [Concomitant]
     Active Substance: ONDANSETRON
     Dates: start: 20210108, end: 20210108
  5. CEFTRIAXONE 1G IV [Concomitant]
     Dates: start: 20210108, end: 20210108
  6. SODIUM CHLORIDE 0.9% 1L BOLUS [Concomitant]
     Dates: start: 20210108, end: 20210108
  7. CARVEDILOL 12.5MG [Concomitant]
     Active Substance: CARVEDILOL
     Dates: start: 20210108, end: 20210108

REACTIONS (5)
  - Vomiting [None]
  - Nausea [None]
  - Asthenia [None]
  - COVID-19 pneumonia [None]
  - Hypophagia [None]

NARRATIVE: CASE EVENT DATE: 20210108
